FAERS Safety Report 11351265 (Version 1)
Quarter: 2015Q3

REPORT INFORMATION
  Report Type: Spontaneous
  Country: US (occurrence: US)
  Receive Date: 20150807
  Receipt Date: 20150807
  Transmission Date: 20151125
  Serious: No
  Sender: FDA-Public Use
  Company Number: US-JNJFOC-20141101808

PATIENT
  Age: 34 Year
  Sex: Male
  Weight: 99.79 kg

DRUGS (4)
  1. PROTEIN SUPPLEMENTS [Concomitant]
     Active Substance: PROTEIN
     Indication: NUTRITIONAL SUPPLEMENTATION
     Dosage: SINCE 17 YEARS
     Route: 065
  2. CLARITIN [Concomitant]
     Active Substance: LORATADINE
     Indication: MULTIPLE ALLERGIES
     Dosage: AS NEEDED 3 WEEKS
     Route: 065
  3. MENS ROGAINE EXTRA STRENGTH [Suspect]
     Active Substance: MINOXIDIL
     Route: 061
  4. MENS ROGAINE EXTRA STRENGTH [Suspect]
     Active Substance: MINOXIDIL
     Indication: HAIR GROWTH ABNORMAL
     Dosage: MOSTLY TWICE A DAY, SOMETIMES ONCE.
     Route: 061
     Dates: start: 201406

REACTIONS (1)
  - Pruritus [Not Recovered/Not Resolved]
